FAERS Safety Report 10580439 (Version 3)
Quarter: 2014Q4

REPORT INFORMATION
  Report Type: Spontaneous
  Country: GB (occurrence: GB)
  Receive Date: 20141112
  Receipt Date: 20141226
  Transmission Date: 20150529
  Serious: Yes (Hospitalization, Other)
  Sender: FDA-Public Use
  Company Number: GB-AMGEN-GBRSP2014087483

PATIENT
  Age: 70 Year
  Sex: Female
  Weight: 143 kg

DRUGS (4)
  1. WARFARIN [Concomitant]
     Active Substance: WARFARIN
     Indication: PULMONARY EMBOLISM
     Dosage: UNK
  2. NPLATE [Suspect]
     Active Substance: ROMIPLOSTIM
     Indication: IMMUNE THROMBOCYTOPENIC PURPURA
     Dosage: 10 MG/KG, QWK
     Route: 058
     Dates: start: 20111230
  3. DANAZOL. [Concomitant]
     Active Substance: DANAZOL
     Indication: IMMUNE THROMBOCYTOPENIC PURPURA
     Dosage: 200 MG, BID
     Route: 048
     Dates: start: 20141010, end: 20141110
  4. DEX                                /00048102/ [Concomitant]
     Dosage: 40 UNK, UNK

REACTIONS (5)
  - Haematuria [Unknown]
  - Haemorrhage [Unknown]
  - Urinary tract infection bacterial [Unknown]
  - Platelet count decreased [Recovered/Resolved]
  - Therapeutic response decreased [Unknown]

NARRATIVE: CASE EVENT DATE: 201407
